FAERS Safety Report 9781197 (Version 1)
Quarter: 2013Q4

REPORT INFORMATION
  Report Type: Spontaneous
  Country: US (occurrence: US)
  Receive Date: 20131224
  Receipt Date: 20131224
  Transmission Date: 20140711
  Serious: No
  Sender: FDA-Public Use
  Company Number: US-B.I. PHARMACEUTICALS,INC./RIDGEFIELD-2013-BI-41852BP

PATIENT
  Age: 83 Year
  Sex: Female
  Weight: 70 kg

DRUGS (6)
  1. COMBIVENT [Suspect]
     Indication: CHRONIC OBSTRUCTIVE PULMONARY DISEASE
     Dosage: STRENGTH: 18MCG/103MCG; DAILY DOSE: 144MCG/824MCG
     Route: 055
     Dates: start: 2005, end: 20131204
  2. THYROID [Concomitant]
     Indication: THYROID DISORDER
     Dosage: DOSE PER APPLICATION: 3 GRAINS; DAILY DOSE: 3 GRAINS
     Route: 048
     Dates: start: 2009
  3. DORZOLAMIDE HCL [Concomitant]
     Indication: GLAUCOMA
     Dosage: DAILY DOSE: 1 DROP
     Dates: start: 2011
  4. XALATAN [Concomitant]
     Indication: GLAUCOMA
     Dosage: DAILY DOSE: ONE DROP
     Dates: start: 2011
  5. TIMOLOL [Concomitant]
     Indication: GLAUCOMA
     Dosage: DAILY DOSE: 1 DROP
     Dates: start: 2011
  6. NAPROXEN [Concomitant]
     Indication: ARTHRITIS
     Dosage: 500 MG
     Route: 048
     Dates: start: 1998

REACTIONS (3)
  - Nervousness [Recovered/Resolved]
  - Restless legs syndrome [Recovered/Resolved]
  - Psychomotor hyperactivity [Recovered/Resolved]
